FAERS Safety Report 7133326-1 (Version None)
Quarter: 2010Q4

REPORT INFORMATION
  Report Type: 
  Country: None (occurrence: None)
  Receive Date: 20101202
  Receipt Date: 20101126
  Transmission Date: 20110411
  Serious: Yes (Other)
  Sender: FDA-Public Use
  Company Number: RU-PFIZER INC-2010158860

PATIENT
  Age: 32 Year
  Sex: Female

DRUGS (1)
  1. DOSTINEX [Suspect]
     Indication: LACTATION INHIBITION THERAPY
     Dosage: 0.25 MG, 2X/DAY
     Route: 048
     Dates: start: 20101123, end: 20101124

REACTIONS (8)
  - BREAST PAIN [None]
  - HEAD DISCOMFORT [None]
  - NASAL CONGESTION [None]
  - NASAL MUCOSAL DISORDER [None]
  - NAUSEA [None]
  - SOMNOLENCE [None]
  - SYNCOPE [None]
  - VOMITING [None]
